FAERS Safety Report 4542385-1 (Version None)
Quarter: 2004Q4

REPORT INFORMATION
  Report Type: 
  Country: None (occurrence: None)
  Receive Date: 20041229
  Receipt Date: 20041217
  Transmission Date: 20050328
  Serious: Yes (Hospitalization)
  Sender: FDA-Public Use
  Company Number: PERIO-2004-0113(0)

PATIENT
  Age: 80 Year
  Sex: Female

DRUGS (4)
  1. DOXYCYCLINE HYCLATE [Suspect]
     Indication: PERIODONTAL DISEASE
     Dosage: 20 MG, BID, PER ORAL
     Route: 048
     Dates: start: 20041001, end: 20041119
  2. LIPITOR [Concomitant]
  3. AVAPRO [Concomitant]
  4. PERIDEX (CHLORHEXIDINE GLUCONATE) [Concomitant]

REACTIONS (7)
  - ASTHENIA [None]
  - CLOSTRIDIAL INFECTION [None]
  - DEHYDRATION [None]
  - DIARRHOEA HAEMORRHAGIC [None]
  - FALL [None]
  - LIMB INJURY [None]
  - SYNCOPE [None]
